FAERS Safety Report 8534103-7 (Version None)
Quarter: 2012Q2

REPORT INFORMATION
  Report Type: 
  Country: None (occurrence: None)
  Receive Date: 20120628
  Receipt Date: 20120611
  Transmission Date: 20120825
  Serious: Yes (Hospitalization)
  Sender: FDA-Public Use
  Company Number: 12-014

PATIENT
  Age: 6 Year
  Sex: Male

DRUGS (2)
  1. EGG WHOLE, CHICKEN (GALLUS GALLUS) 1:20 W/V [Suspect]
     Indication: SKIN TEST
     Dosage: 5 ML
  2. EGG WHOLE, CHICKEN (GLLUS GALLUS) 1:20 W/V [Suspect]

REACTIONS (9)
  - ABDOMINAL DISCOMFORT [None]
  - RHINORRHOEA [None]
  - OCULAR HYPERAEMIA [None]
  - PRURITUS [None]
  - PALLOR [None]
  - OROPHARYNGEAL PAIN [None]
  - ANAPHYLACTIC REACTION [None]
  - ERYTHEMA [None]
  - COUGH [None]
